FAERS Safety Report 18297653 (Version 4)
Quarter: 2020Q4

REPORT INFORMATION
  Report Type: Spontaneous
  Country: PL (occurrence: PL)
  Receive Date: 20200922
  Receipt Date: 20201008
  Transmission Date: 20210113
  Serious: Yes (Other)
  Sender: FDA-Public Use
  Company Number: PL-PFIZER INC-2020362586

PATIENT
  Age: 34 Year
  Sex: Male

DRUGS (14)
  1. ETOPOSIDE. [Suspect]
     Active Substance: ETOPOSIDE
     Indication: CHEMOTHERAPY
  2. ETOPOSIDE. [Suspect]
     Active Substance: ETOPOSIDE
     Indication: HODGKIN^S DISEASE
     Dosage: UNK, CYCLIC (ESCALATED DOSES, 2 CYCLIC)
     Dates: start: 2014
  3. CYCLOPHOSPHAMIDE. [Suspect]
     Active Substance: CYCLOPHOSPHAMIDE
     Indication: CHEMOTHERAPY
  4. PREDNISONE. [Suspect]
     Active Substance: PREDNISONE
     Indication: CHEMOTHERAPY
  5. BLEOMYCIN [Suspect]
     Active Substance: BLEOMYCIN SULFATE
     Indication: CHEMOTHERAPY
  6. PROCARBAZINE [Suspect]
     Active Substance: PROCARBAZINE
     Indication: CHEMOTHERAPY
  7. DOXORUBICIN HCL [Suspect]
     Active Substance: DOXORUBICIN HYDROCHLORIDE
     Indication: HODGKIN^S DISEASE NODULAR SCLEROSIS STAGE II
     Dosage: UNK, CYCLIC (ESCALATED DOSES, 2) 2 COURSES
     Dates: start: 2014
  8. DOXORUBICIN HCL [Suspect]
     Active Substance: DOXORUBICIN HYDROCHLORIDE
     Indication: CHEMOTHERAPY
  9. CYCLOPHOSPHAMIDE. [Suspect]
     Active Substance: CYCLOPHOSPHAMIDE
     Indication: HODGKIN^S DISEASE NODULAR SCLEROSIS STAGE II
     Dosage: UNK, CYCLIC (ESCALATED DOSES, 2) 2 COURSES
     Dates: start: 2014
  10. BLEOMYCIN [Suspect]
     Active Substance: BLEOMYCIN SULFATE
     Indication: HODGKIN^S DISEASE NODULAR SCLEROSIS STAGE II
     Dosage: UNK, CYCLIC (ESCALATED DOSES, 2 CYCLIC)
     Dates: start: 2014
  11. PROCARBAZINE [Suspect]
     Active Substance: PROCARBAZINE
     Indication: HODGKIN^S DISEASE NODULAR SCLEROSIS STAGE II
     Dosage: UNK, CYCLIC  (ESCALATED DOSES, 2 COURSES)
     Dates: start: 2014
  12. PREDNISONE. [Suspect]
     Active Substance: PREDNISONE
     Indication: HODGKIN^S DISEASE NODULAR SCLEROSIS STAGE II
     Dosage: UNK, CYCLIC (ESCALATED DOSES, 2) 2 COURSES
     Dates: start: 2014
  13. VINCRISTINE [Suspect]
     Active Substance: VINCRISTINE
     Indication: HODGKIN^S DISEASE NODULAR SCLEROSIS STAGE II
     Dosage: UNK, CYCLIC (ESCALATED DOSES, 2 CYCLIC)
     Dates: start: 2014
  14. VINCRISTINE [Suspect]
     Active Substance: VINCRISTINE
     Indication: CHEMOTHERAPY

REACTIONS (3)
  - Pseudomonas infection [Recovered/Resolved]
  - Septic shock [Recovered/Resolved]
  - Clostridium difficile colitis [Recovering/Resolving]

NARRATIVE: CASE EVENT DATE: 2014
